FAERS Safety Report 15878413 (Version 1)
Quarter: 2019Q1

REPORT INFORMATION
  Report Type: Spontaneous
  Country: FR (occurrence: FR)
  Receive Date: 20190128
  Receipt Date: 20190128
  Transmission Date: 20190417
  Serious: Yes (Other)
  Sender: FDA-Public Use
  Company Number: FR-BAUSCH-BL-2019-002518

PATIENT
  Sex: Male

DRUGS (1)
  1. XENAZINE [Suspect]
     Active Substance: TETRABENAZINE
     Indication: PRODUCT USED FOR UNKNOWN INDICATION
     Dosage: END DATE: JULY OR AUGUST 2018
     Route: 065
     Dates: end: 2018

REACTIONS (2)
  - Off label use [Recovered/Resolved]
  - Epilepsy [Not Recovered/Not Resolved]
